FAERS Safety Report 18179198 (Version 1)
Quarter: 2020Q3

REPORT INFORMATION
  Report Type: Report from Study
  Country: US (occurrence: US)
  Receive Date: 20200821
  Receipt Date: 20200821
  Transmission Date: 20201103
  Serious: Yes (Hospitalization)
  Sender: FDA-Public Use
  Company Number: US-B.I. PHARMACEUTICALS,INC./RIDGEFIELD-2020-MR-031273

PATIENT
  Age: 53 Year
  Sex: Female

DRUGS (2)
  1. OFEV [Suspect]
     Active Substance: NINTEDANIB
     Indication: PULMONARY FIBROSIS
     Dosage: TAKE ONE CAPSULE BY MOUTH TWICE DAILY
     Route: 048
  2. OFEV [Suspect]
     Active Substance: NINTEDANIB
     Dosage: TAKE ONE CAPSULE BY MOUTH TWICE DAILY
     Route: 048

REACTIONS (4)
  - Diarrhoea [Unknown]
  - Crohn^s disease [Unknown]
  - Internal haemorrhage [Unknown]
  - Blood pressure fluctuation [Unknown]

NARRATIVE: CASE EVENT DATE: 2020
